FAERS Safety Report 6828387-0 (Version None)
Quarter: 2010Q3

REPORT INFORMATION
  Report Type: 
  Country: None (occurrence: None)
  Receive Date: 20100709
  Receipt Date: 20070207
  Transmission Date: 20110219
  Serious: No
  Sender: FDA-Public Use
  Company Number: US-PFIZER INC-2007010968

PATIENT
  Sex: Female
  Weight: 56.7 kg

DRUGS (5)
  1. CHANTIX [Suspect]
     Indication: SMOKING CESSATION THERAPY
     Dates: start: 20070130, end: 20070206
  2. ALL OTHER THERAPEUTIC PRODUCTS [Concomitant]
     Dates: end: 20070201
  3. NYQUIL [Concomitant]
     Dates: end: 20070201
  4. EFFEXOR [Concomitant]
     Dates: end: 20070101
  5. WELLBUTRIN [Concomitant]
     Dates: end: 20070101

REACTIONS (4)
  - ABDOMINAL PAIN UPPER [None]
  - CONSTIPATION [None]
  - DIARRHOEA [None]
  - FLATULENCE [None]
